FAERS Safety Report 18043988 (Version 1)
Quarter: 2020Q3

REPORT INFORMATION
  Report Type: Spontaneous
  Country: US (occurrence: US)
  Receive Date: 20200719
  Receipt Date: 20200719
  Transmission Date: 20201103
  Serious: Yes (Other)
  Sender: FDA-Public Use
  Company Number: None

PATIENT

DRUGS (1)
  1. DEFENDR HAND SANITIZER [Suspect]
     Active Substance: ALCOHOL

REACTIONS (1)
  - Vomiting [None]

NARRATIVE: CASE EVENT DATE: 20200711
